FAERS Safety Report 6902517-4 (Version None)
Quarter: 2010Q3

REPORT INFORMATION
  Report Type: 
  Country: None (occurrence: None)
  Receive Date: 20100730
  Receipt Date: 20100715
  Transmission Date: 20110219
  Serious: Yes (Death, Other)
  Sender: FDA-Public Use
  Company Number: 2010002981

PATIENT
  Age: 74 Year
  Sex: Female

DRUGS (6)
  1. ERLOTINIB (ERLOTINIB) (ERLOTINIB) [Suspect]
     Indication: NON-SMALL CELL LUNG CANCER
     Dosage: (75 MG,QD)
     Dates: start: 20090228, end: 20090303
  2. BETAMETHASONE [Concomitant]
  3. POLAPREZINC (POLAPREZINC) [Concomitant]
  4. URSODIOL [Concomitant]
  5. MELOXICAM [Concomitant]
  6. ZONASAMIDE (ZONASAMIDE) [Concomitant]

REACTIONS (3)
  - COMA [None]
  - DISEASE PROGRESSION [None]
  - SOMNOLENCE [None]
